APPROVED DRUG PRODUCT: RAMIPRIL
Active Ingredient: RAMIPRIL
Strength: 1.25MG
Dosage Form/Route: TABLET;ORAL
Application: A091069 | Product #001
Applicant: APOTEX INC
Approved: Dec 2, 2015 | RLD: No | RS: No | Type: DISCN